FAERS Safety Report 4300009-2 (Version None)
Quarter: 2004Q1

REPORT INFORMATION
  Report Type: 
  Country: None (occurrence: None)
  Receive Date: 20040218
  Receipt Date: 20040205
  Transmission Date: 20041129
  Serious: Yes (Death)
  Sender: FDA-Public Use
  Company Number: 2003AP04286

PATIENT
  Age: 66 Year
  Sex: Male

DRUGS (8)
  1. IRESSA [Suspect]
     Indication: LUNG ADENOCARCINOMA
     Dosage: 250 MG DAILY PO
     Route: 048
     Dates: start: 20031115
  2. WARFARIN [Suspect]
     Indication: SUPERIOR VENA CAVAL OCCLUSION
     Dosage: 25 MG DAILY PO
     Route: 048
  3. PREDNISOLONE [Concomitant]
  4. MAINTATE [Concomitant]
  5. ALLOID [Concomitant]
  6. MAALOX [Concomitant]
  7. OMEPRAZOLE [Concomitant]
  8. RADIOTHERAPY [Concomitant]

REACTIONS (2)
  - BRAIN HERNIATION [None]
  - CEREBRAL HAEMORRHAGE [None]
